FAERS Safety Report 23150589 (Version 2)
Quarter: 2023Q4

REPORT INFORMATION
  Report Type: Spontaneous
  Country: IN (occurrence: IN)
  Receive Date: 20231106
  Receipt Date: 20231115
  Transmission Date: 20240109
  Serious: Yes (Hospitalization, Other)
  Sender: FDA-Public Use
  Company Number: IN-MLMSERVICE-20231023-4616580-1

PATIENT
  Age: 32 Year
  Sex: Male

DRUGS (8)
  1. ISONIAZID [Suspect]
     Active Substance: ISONIAZID
     Indication: Pulmonary tuberculosis
     Dosage: 1 DF QD IN THE MORNING 30 MIN BEFORE FOOD OR 2 HR AFTER THE FOOD
  2. PYRAZINAMIDE [Suspect]
     Active Substance: PYRAZINAMIDE
     Indication: Pulmonary tuberculosis
     Dosage: 1 DF QD IN THE MORNING 30 MIN BEFORE FOOD OR 2 HR AFTER THE FOOD
  3. ETHAMBUTOL [Suspect]
     Active Substance: ETHAMBUTOL HYDROCHLORIDE
     Indication: Pulmonary tuberculosis
     Dosage: 1 DF QD IN THE MORNING 30 MIN BEFORE FOOD OR 2 HR AFTER THE FOOD
  4. RIFAMPIN [Suspect]
     Active Substance: RIFAMPIN
     Indication: Pulmonary tuberculosis
     Dosage: 1 DF QD IN THE MORNING 30 MIN BEFORE FOOD OR 2 HR AFTER THE FOOD
  5. DEXAMETHASONE [Suspect]
     Active Substance: DEXAMETHASONE
     Indication: Pseudo Cushing^s syndrome
     Dosage: 2MG Q12H
  6. DEXAMETHASONE [Suspect]
     Active Substance: DEXAMETHASONE
     Dosage: 0.5 MG, QID  (9 AM, 3 PM, 9PM, 3 AM)
  7. TESTOSTERONE [Suspect]
     Active Substance: TESTOSTERONE
     Indication: Muscle building therapy
     Dosage: UNK
  8. METFORMIN [Concomitant]
     Active Substance: METFORMIN HYDROCHLORIDE
     Indication: Diabetes mellitus
     Dosage: 500 MG, BID

REACTIONS (12)
  - Pseudo Cushing^s syndrome [Recovering/Resolving]
  - Intentional product misuse [Recovering/Resolving]
  - Dyspnoea [Recovering/Resolving]
  - Asthenia [Recovering/Resolving]
  - Tachycardia [Recovering/Resolving]
  - Pleural effusion [Recovering/Resolving]
  - Drug-induced liver injury [Recovering/Resolving]
  - Hepatomegaly [Recovering/Resolving]
  - Hepatic steatosis [Recovering/Resolving]
  - Splenomegaly [Recovering/Resolving]
  - Abdominal tenderness [Recovering/Resolving]
  - Jaundice [Recovering/Resolving]
